FAERS Safety Report 7779696-2 (Version None)
Quarter: 2011Q3

REPORT INFORMATION
  Report Type: 
  Country: None (occurrence: None)
  Receive Date: 20110927
  Receipt Date: 20110923
  Transmission Date: 20111222
  Serious: Yes (Other)
  Sender: FDA-Public Use
  Company Number: US-PFIZER INC-2011228047

PATIENT
  Sex: Female
  Weight: 68.027 kg

DRUGS (3)
  1. CHANTIX [Suspect]
     Indication: SMOKING CESSATION THERAPY
     Dosage: 0.5 MG, DAILY
     Route: 048
     Dates: start: 20110801, end: 20110101
  2. BUSPIRONE [Concomitant]
     Indication: ANXIETY
     Dosage: 30 MG, 2X/DAY
  3. CHANTIX [Suspect]
     Dosage: 1 MG, 2X/DAY
     Route: 048
     Dates: start: 20110101, end: 20110901

REACTIONS (5)
  - ANGER [None]
  - PRURITUS GENERALISED [None]
  - IRRITABILITY [None]
  - MOOD ALTERED [None]
  - SKIN LESION [None]
